FAERS Safety Report 9060081 (Version 1)
Quarter: 2013Q1

REPORT INFORMATION
  Report Type: Spontaneous
  Country: US (occurrence: None)
  Receive Date: 20130118
  Receipt Date: 20130118
  Transmission Date: 20140127
  Serious: Yes (Death, Other)
  Sender: FDA-Public Use
  Company Number: AUR-APL-2013-00538

PATIENT
  Age: 50 Year
  Sex: Female

DRUGS (4)
  1. ALPRAZOLAM (ALPRAZOLAM) [Suspect]
     Indication: PRODUCT USED FOR UNKNOWN INDICATION
  2. BUPROPION [Suspect]
     Indication: PRODUCT USED FOR UNKNOWN INDICATION
  3. ETHANOL [Suspect]
     Indication: PRODUCT USED FOR UNKNOWN INDICATION
  4. ACETAMINOPHEN/OXYCODONE [Suspect]
     Indication: PRODUCT USED FOR UNKNOWN INDICATION

REACTIONS (4)
  - Completed suicide [None]
  - Cardiac arrest [None]
  - Respiratory arrest [None]
  - Toxicity to various agents [None]
